FAERS Safety Report 16537862 (Version 2)
Quarter: 2019Q3

REPORT INFORMATION
  Report Type: Spontaneous
  Country: JP (occurrence: JP)
  Receive Date: 20190708
  Receipt Date: 20190722
  Transmission Date: 20191004
  Serious: Yes (Hospitalization, Other)
  Sender: FDA-Public Use
  Company Number: JP-SA-2019SA168933

PATIENT
  Age: 78 Year
  Sex: Male
  Weight: 50 kg

DRUGS (12)
  1. HERBESSER [Suspect]
     Active Substance: DILTIAZEM HYDROCHLORIDE
     Indication: ANGINA PECTORIS
     Dosage: 100 MG, QD
     Route: 048
  2. ESOMEPRAZOLE MAGNESIUM. [Concomitant]
     Active Substance: ESOMEPRAZOLE MAGNESIUM
     Dosage: UNK
     Route: 048
  3. AMLODIPINE [Concomitant]
     Active Substance: AMLODIPINE BESYLATE
     Indication: HYPERTENSION
     Dosage: UNK
     Route: 048
  4. RIFAMPICIN [Suspect]
     Active Substance: RIFAMPIN
     Indication: TUBERCULOSIS
     Dosage: 450 MG, QD
     Route: 048
     Dates: start: 20190528
  5. PYRIDOXAL [Concomitant]
     Active Substance: PYRIDOXAL
     Indication: TUBERCULOSIS
     Dosage: UNK
     Route: 048
     Dates: start: 20190528
  6. EPINASTINE [EPINASTINE HYDROCHLORIDE] [Concomitant]
     Indication: ECZEMA
     Dosage: UNK
     Route: 048
     Dates: start: 20190527
  7. LEVOTHYROXINE NA [Concomitant]
     Active Substance: LEVOTHYROXINE SODIUM
     Dosage: UNK
     Route: 048
  8. EBUTOL [ETHAMBUTOL DIHYDROCHLORIDE] [Concomitant]
     Indication: TUBERCULOSIS
     Dosage: UNK
     Route: 048
     Dates: start: 20190528
  9. VILDAGLIPTIN [Concomitant]
     Active Substance: VILDAGLIPTIN
     Indication: TYPE 2 DIABETES MELLITUS
     Dosage: UNK
     Route: 048
     Dates: start: 20190528
  10. PYRAZINAMIDE. [Concomitant]
     Active Substance: PYRAZINAMIDE
     Dosage: UNK
     Route: 048
     Dates: start: 20190528
  11. HERBESSER [Suspect]
     Active Substance: DILTIAZEM HYDROCHLORIDE
     Dosage: 200 MG, QD
     Route: 048
     Dates: start: 20190606
  12. ISONIAZID. [Concomitant]
     Active Substance: ISONIAZID
     Indication: TUBERCULOSIS
     Dosage: UNK
     Route: 048
     Dates: start: 20190528

REACTIONS (2)
  - Prinzmetal angina [Recovered/Resolved]
  - Angina pectoris [Recovered/Resolved]

NARRATIVE: CASE EVENT DATE: 20190604
